FAERS Safety Report 19793626 (Version 4)
Quarter: 2021Q3

REPORT INFORMATION
  Report Type: Spontaneous
  Country: FR (occurrence: FR)
  Receive Date: 20210906
  Receipt Date: 20210910
  Transmission Date: 20211014
  Serious: Yes (Death, Life-Threatening)
  Sender: FDA-Public Use
  Company Number: FR-PFIZER INC-202101122721

PATIENT
  Age: 80 Year
  Sex: Female
  Weight: 60 kg

DRUGS (2)
  1. METHOTREXATE SODIUM. [Suspect]
     Active Substance: METHOTREXATE SODIUM
     Indication: RHEUMATOID ARTHRITIS
  2. METHOTREXATE SODIUM. [Suspect]
     Active Substance: METHOTREXATE SODIUM
     Indication: POLYARTHRITIS
     Dosage: 7.5 MG, DAILY
     Route: 048
     Dates: start: 20210604, end: 20210615

REACTIONS (15)
  - Product use issue [Unknown]
  - Fatigue [Unknown]
  - Acute pulmonary oedema [Unknown]
  - Atrial fibrillation [Unknown]
  - Mucosal inflammation [Fatal]
  - Ecchymosis [Unknown]
  - Sepsis [Fatal]
  - Dehydration [Unknown]
  - Off label use [Unknown]
  - Thrombocytopenia [Fatal]
  - Decreased appetite [Unknown]
  - Leukopenia [Fatal]
  - Agranulocytosis [Fatal]
  - Pyrexia [Fatal]
  - Overdose [Fatal]

NARRATIVE: CASE EVENT DATE: 20210604
